FAERS Safety Report 8793358 (Version 1)
Quarter: 2012Q4

REPORT INFORMATION
  Report Type: 
  Country: US (occurrence: US)
  Receive Date: 20120918
  Receipt Date: 20120918
  Transmission Date: 20130627
  Serious: No
  Sender: FDA-Public Use
  Company Number: US-TEVA-359264USA

PATIENT
  Sex: Male

DRUGS (1)
  1. NUVIGIL [Suspect]
     Indication: FATIGUE
     Dosage: 150 Milligram Daily;
     Route: 048

REACTIONS (4)
  - Gait disturbance [Unknown]
  - Dizziness [Unknown]
  - Drug effect increased [Unknown]
  - Off label use [Unknown]
